FAERS Safety Report 25216309 (Version 2)
Quarter: 2025Q2

REPORT INFORMATION
  Report Type: Report from Study
  Country: US (occurrence: US)
  Receive Date: 20250418
  Receipt Date: 20250527
  Transmission Date: 20250717
  Serious: Yes (Hospitalization)
  Sender: EISAI
  Company Number: US-Eisai-EC-2025-186582

PATIENT
  Age: 54 Year
  Sex: Female

DRUGS (3)
  1. LENVIMA [Suspect]
     Active Substance: LENVATINIB
     Indication: Renal cell carcinoma
     Dates: end: 202504
  2. LENVIMA [Suspect]
     Active Substance: LENVATINIB
     Dates: start: 202504, end: 202504
  3. LENVIMA [Suspect]
     Active Substance: LENVATINIB
     Dates: start: 202504

REACTIONS (9)
  - Pneumonia [Recovering/Resolving]
  - Constipation [Recovering/Resolving]
  - Pericardial effusion [Recovering/Resolving]
  - Feeling cold [Recovering/Resolving]
  - Syncope [Recovering/Resolving]
  - Heart rate increased [Recovering/Resolving]
  - Blood potassium increased [Recovering/Resolving]
  - Cough [Recovering/Resolving]
  - Fall [Unknown]

NARRATIVE: CASE EVENT DATE: 20250101
